FAERS Safety Report 9033372 (Version 1)
Quarter: 2013Q1

REPORT INFORMATION
  Report Type: Other
  Country: US (occurrence: US)
  Receive Date: 20130128
  Receipt Date: 20130128
  Transmission Date: 20140127
  Serious: Yes (Death)
  Sender: FDA-Public Use
  Company Number: US-FRI-1000042100

PATIENT
  Age: 43 Year
  Sex: Female

DRUGS (6)
  1. CITALOPRAM [Suspect]
  2. MILNACIPRAN [Suspect]
  3. VENLAFAXINE [Suspect]
  4. METHAMPHETAMINE [Suspect]
  5. FLUOXETINE [Suspect]
  6. DOXEPIN [Suspect]

REACTIONS (1)
  - Drug abuse [Fatal]
